FAERS Safety Report 10197015 (Version 1)
Quarter: 2014Q2

REPORT INFORMATION
  Report Type: Spontaneous
  Country: US (occurrence: None)
  Receive Date: 20140523
  Receipt Date: 20140523
  Transmission Date: 20141212
  Serious: Yes (Hospitalization)
  Sender: FDA-Public Use
  Company Number: None

PATIENT
  Age: 61 Year
  Sex: Male

DRUGS (1)
  1. INSULIN [Suspect]
     Indication: HYPERGLYCAEMIA
     Dosage: TITRATION?CONTINOUS?IV
     Route: 042
     Dates: end: 20140225

REACTIONS (3)
  - Hypoglycaemia [None]
  - Extravasation [None]
  - Deep vein thrombosis [None]
